FAERS Safety Report 12214853 (Version 1)
Quarter: 2016Q1

REPORT INFORMATION
  Report Type: Spontaneous
  Country: TR (occurrence: TR)
  Receive Date: 20160328
  Receipt Date: 20160328
  Transmission Date: 20160526
  Serious: Yes (Other)
  Sender: FDA-Public Use
  Company Number: TR-JNJFOC-20160321857

PATIENT
  Sex: Male

DRUGS (8)
  1. ETOPOSIDE. [Suspect]
     Active Substance: ETOPOSIDE
     Indication: HODGKIN^S DISEASE RECURRENT
     Route: 065
  2. VINBLASTIN [Suspect]
     Active Substance: VINBLASTINE
     Indication: HODGKIN^S DISEASE RECURRENT
     Dosage: 2-6 COURCES
     Route: 065
  3. DACARBAZIN [Suspect]
     Active Substance: DACARBAZINE
     Indication: HODGKIN^S DISEASE RECURRENT
     Dosage: 2-6 COURCES
     Route: 065
  4. CARBOPLATIN. [Suspect]
     Active Substance: CARBOPLATIN
     Indication: HODGKIN^S DISEASE RECURRENT
     Route: 065
  5. DOXORUBICIN HYDROCHLORIDE. [Suspect]
     Active Substance: DOXORUBICIN HYDROCHLORIDE
     Indication: HODGKIN^S DISEASE RECURRENT
     Dosage: 2-6 COURCES
     Route: 065
  6. BRENTUXIMAB VEDOTIN [Suspect]
     Active Substance: BRENTUXIMAB VEDOTIN
     Indication: HODGKIN^S DISEASE RECURRENT
     Dosage: 2-8 COURCES
     Route: 065
  7. IFOSFAMIDE. [Suspect]
     Active Substance: IFOSFAMIDE
     Indication: HODGKIN^S DISEASE RECURRENT
     Route: 065
  8. RITUXIMAB [Suspect]
     Active Substance: RITUXIMAB
     Indication: HODGKIN^S DISEASE RECURRENT
     Route: 065

REACTIONS (1)
  - Bone marrow failure [Unknown]
